FAERS Safety Report 4527479-9 (Version None)
Quarter: 2004Q4

REPORT INFORMATION
  Report Type: 
  Country: None (occurrence: None)
  Receive Date: 20041123
  Receipt Date: 20040903
  Transmission Date: 20050328
  Serious: Yes (Hospitalization)
  Sender: FDA-Public Use
  Company Number: 2004051873

PATIENT
  Age: 76 Year
  Sex: Male

DRUGS (8)
  1. LIPITOR [Suspect]
     Indication: CORONARY ARTERY DISEASE
     Dosage: 80 MG (80 MG,1 IN 1 D), ORAL
     Route: 048
     Dates: start: 20040601
  2. METFORMIN HYDROCHLORIDE [Suspect]
     Indication: DIABETES MELLITUS
     Dosage: ORAL
     Route: 048
     Dates: start: 20040101
  3. CLOPIDOGREL BISULFATE [Concomitant]
  4. GLIPIZIDE [Concomitant]
  5. METOPROLOL TARTRATE [Concomitant]
  6. GEZOR (HYDROCHLOROTHIAZIDE, QUINAPRIL HYDROCHLORIDE) [Concomitant]
  7. RANITIDINE [Concomitant]
  8. ASPIRIN [Concomitant]

REACTIONS (1)
  - HEPATITIS [None]
